FAERS Safety Report 9290276 (Version 1)
Quarter: 2013Q2

REPORT INFORMATION
  Report Type: Spontaneous
  Country: US (occurrence: US)
  Receive Date: 20130515
  Receipt Date: 20130515
  Transmission Date: 20140414
  Serious: Yes (Other)
  Sender: FDA-Public Use
  Company Number: US-ELI_LILLY_AND_COMPANY-US201305002787

PATIENT
  Age: 72 Year
  Sex: Female

DRUGS (1)
  1. FORTEO [Suspect]
     Dosage: UNK, QD

REACTIONS (5)
  - Ulcer haemorrhage [Unknown]
  - Impaired healing [Unknown]
  - Abdominal pain [Unknown]
  - Cough [Unknown]
  - Sneezing [Unknown]
